FAERS Safety Report 5988158-4 (Version None)
Quarter: 2008Q4

REPORT INFORMATION
  Report Type: 
  Country: None (occurrence: None)
  Receive Date: 20081208
  Receipt Date: 20081208
  Transmission Date: 20090506
  Serious: Yes (Other)
  Sender: FDA-Public Use
  Company Number: None

PATIENT
  Age: 32 Year
  Sex: Female
  Weight: 59.4212 kg

DRUGS (1)
  1. TRANSDERM SCOP [Suspect]
     Indication: VERTIGO
     Dosage: 1 PATCH EVERY 3 DAYS TRANSDERMAL
     Route: 062
     Dates: start: 20081010, end: 20081207

REACTIONS (5)
  - APPLICATION SITE SWELLING [None]
  - APPLICATION SITE VESICLES [None]
  - EAR PRURITUS [None]
  - HYPERSENSITIVITY [None]
  - PRURITUS [None]
